FAERS Safety Report 7217887-X (Version None)
Quarter: 2011Q1

REPORT INFORMATION
  Report Type: 
  Country: None (occurrence: None)
  Receive Date: 20110110
  Receipt Date: 20070426
  Transmission Date: 20110831
  Serious: Yes (Hospitalization)
  Sender: FDA-Public Use
  Company Number: PHRM2007FR01361

PATIENT
  Age: 83 Year
  Sex: Female

DRUGS (9)
  1. NISISCO [Suspect]
     Indication: HYPERTENSION
     Dosage: 1 DF, QD
     Route: 048
     Dates: end: 20061221
  2. COVERSYL [Suspect]
     Indication: HYPERTENSION
     Dosage: 4 MG, QD
     Route: 048
     Dates: end: 20061221
  3. ALDACTONE [Suspect]
     Indication: HYPERTENSION
     Dosage: 50 MG, BID
     Route: 048
     Dates: end: 20061221
  4. ASASANTIN [Concomitant]
     Route: 048
  5. GLUCOR [Concomitant]
     Indication: DIABETES MELLITUS
     Route: 048
  6. MIXTARD HUMAN 70/30 [Concomitant]
     Indication: TYPE 1 DIABETES MELLITUS
     Route: 058
  7. NEBIVOLOL (TEMERIT) [Concomitant]
     Dates: end: 20061202
  8. ZANIDIP [Concomitant]
     Dates: end: 20061202
  9. LASIX [Concomitant]
     Dosage: 40 MG, QD
     Route: 048
     Dates: start: 20061101

REACTIONS (8)
  - GENERAL PHYSICAL HEALTH DETERIORATION [None]
  - ASCITES [None]
  - HYPERKALAEMIA [None]
  - ELECTROCARDIOGRAM REPOLARISATION ABNORMALITY [None]
  - RENAL FAILURE ACUTE [None]
  - BLOOD CREATININE INCREASED [None]
  - BUNDLE BRANCH BLOCK LEFT [None]
  - ATRIAL FIBRILLATION [None]
